FAERS Safety Report 8290295-9 (Version None)
Quarter: 2012Q2

REPORT INFORMATION
  Report Type: 
  Country: None (occurrence: None)
  Receive Date: 20120412
  Receipt Date: 20120412
  Transmission Date: 20120825
  Serious: No
  Sender: FDA-Public Use
  Company Number: None

PATIENT
  Sex: Male

DRUGS (1)
  1. REBIF [Suspect]
     Dosage: 44.000 MCG TIW SQ
     Route: 058
     Dates: start: 20120110, end: 20120221

REACTIONS (1)
  - DRUG HYPERSENSITIVITY [None]
